FAERS Safety Report 15580685 (Version 1)
Quarter: 2018Q4

REPORT INFORMATION
  Report Type: Spontaneous
  Country: US (occurrence: US)
  Receive Date: 20181102
  Receipt Date: 20181102
  Transmission Date: 20190205
  Serious: Yes (Other)
  Sender: FDA-Public Use
  Company Number: US-BAYER-2018-202073

PATIENT
  Age: 35 Year
  Sex: Female

DRUGS (1)
  1. MIRENA [Suspect]
     Active Substance: LEVONORGESTREL
     Indication: CONTRACEPTION
     Dosage: 20 MCG/24HR, CONT
     Route: 015
     Dates: start: 200811, end: 200911

REACTIONS (15)
  - Depression [None]
  - Idiopathic intracranial hypertension [None]
  - Malaise [None]
  - Mood swings [None]
  - Irritability [None]
  - Vertigo [None]
  - Visual impairment [None]
  - Blood potassium decreased [None]
  - Alopecia [None]
  - Weight increased [None]
  - Dizziness [None]
  - Blood iron decreased [None]
  - Amnesia [None]
  - Presyncope [None]
  - Asthenia [None]
